FAERS Safety Report 7519308-6 (Version None)
Quarter: 2011Q2

REPORT INFORMATION
  Report Type: 
  Country: None (occurrence: None)
  Receive Date: 20110602
  Receipt Date: 20110510
  Transmission Date: 20111010
  Serious: Yes (Hospitalization, Other)
  Sender: FDA-Public Use
  Company Number: US-SANOFI-AVENTIS-2011SA019893

PATIENT
  Age: 67 Year
  Sex: Female
  Weight: 70.3 kg

DRUGS (12)
  1. NITROGLYCERIN [Concomitant]
  2. ATACAND [Concomitant]
     Dosage: 1/2 TABLET IN AM AND PM
  3. AMLODIPINE [Concomitant]
     Dosage: IN AM
  4. ALL OTHER THERAPEUTIC PRODUCTS [Concomitant]
     Dosage: 1 TABLET PM
  5. VITAMIN D [Concomitant]
     Dosage: AM
  6. LANTUS [Suspect]
     Dosage: DOSE:14 UNIT(S)
     Route: 058
  7. HUMALOG [Concomitant]
     Dosage: 2 UNITS PER 15 GRAMS CARBOHYDRATE CONSUMED
  8. ATENOLOL [Concomitant]
     Dosage: 1 TAB PM
  9. CLONIDINE [Concomitant]
     Dosage: 1/2 AM AND 1 PM
  10. LEVOTHYROXINE SODIUM [Concomitant]
     Dosage: AM
  11. ASPIRIN [Concomitant]
     Dosage: PM
  12. HYDROCHLOROTHIAZIDE [Concomitant]
     Dosage: AM

REACTIONS (5)
  - HIP FRACTURE [None]
  - DIABETIC RETINOPATHY [None]
  - VISUAL IMPAIRMENT [None]
  - CATARACT [None]
  - HYPERMETROPIA [None]
